FAERS Safety Report 7054247-9 (Version None)
Quarter: 2010Q4

REPORT INFORMATION
  Report Type: 
  Country: None (occurrence: None)
  Receive Date: 20101020
  Receipt Date: 20101013
  Transmission Date: 20110411
  Serious: Yes (Other)
  Sender: FDA-Public Use
  Company Number: GB-ABBOTT-10P-167-0678365-00

PATIENT
  Sex: Female
  Weight: 89 kg

DRUGS (8)
  1. HUMIRA [Suspect]
     Indication: RHEUMATOID ARTHRITIS
     Route: 058
     Dates: start: 20070815
  2. METHOTREXATE [Concomitant]
     Indication: PRODUCT USED FOR UNKNOWN INDICATION
     Dates: start: 20030716, end: 20100511
  3. WARFARIN [Concomitant]
     Indication: ATRIAL FIBRILLATION
     Dosage: LONG TERM
  4. BISOPROLOL [Concomitant]
     Indication: PRODUCT USED FOR UNKNOWN INDICATION
  5. CANDESARTAN CILEXETIL [Concomitant]
     Indication: PRODUCT USED FOR UNKNOWN INDICATION
  6. PRAVASTATIN [Concomitant]
     Indication: PRODUCT USED FOR UNKNOWN INDICATION
  7. OMEPRAZOLE [Concomitant]
     Indication: PRODUCT USED FOR UNKNOWN INDICATION
  8. FRUSEMIDE [Concomitant]
     Indication: CARDIAC FAILURE CONGESTIVE

REACTIONS (3)
  - LOWER RESPIRATORY TRACT INFLAMMATION [None]
  - PLEURISY [None]
  - PULMONARY FIBROSIS [None]
